FAERS Safety Report 8391012-4 (Version None)
Quarter: 2012Q1

REPORT INFORMATION
  Report Type: 
  Country: None (occurrence: None)
  Receive Date: 20120323
  Receipt Date: 20110714
  Transmission Date: 20120608
  Serious: Yes (Hospitalization, Other)
  Sender: FDA-Public Use
  Company Number: 163-21880-11031262

PATIENT
  Age: 57 Year
  Sex: Male

DRUGS (8)
  1. BORTEZOMIB [Concomitant]
  2. DEXAMETHASONE [Concomitant]
  3. OXYCODONE HCL [Concomitant]
  4. ROXICODONE [Concomitant]
  5. ASPIRIN [Concomitant]
  6. REVLIMID [Suspect]
     Indication: MULTIPLE MYELOMA
     Dosage: 25 MG, DAILY X 21 DAYS, PO ; 25 MG, X 7 DAYS, PO ; 25 MG, DAILY X 14 DAYS, PO
     Route: 048
     Dates: start: 20101001
  7. REVLIMID [Suspect]
     Indication: MULTIPLE MYELOMA
     Dosage: 25 MG, DAILY X 21 DAYS, PO ; 25 MG, X 7 DAYS, PO ; 25 MG, DAILY X 14 DAYS, PO
     Route: 048
     Dates: start: 20101001
  8. REVLIMID [Suspect]
     Indication: MULTIPLE MYELOMA
     Dosage: 25 MG, DAILY X 21 DAYS, PO ; 25 MG, X 7 DAYS, PO ; 25 MG, DAILY X 14 DAYS, PO
     Route: 048
     Dates: start: 20101101

REACTIONS (4)
  - DIARRHOEA [None]
  - NAUSEA [None]
  - PRESYNCOPE [None]
  - RENAL FAILURE ACUTE [None]
